FAERS Safety Report 9687643 (Version 4)
Quarter: 2014Q1

REPORT INFORMATION
  Report Type: Spontaneous
  Country: GB (occurrence: None)
  Receive Date: 20131112
  Receipt Date: 20140122
  Transmission Date: 20141002
  Serious: Yes (Life-Threatening, Hospitalization, Other)
  Sender: FDA-Public Use
  Company Number: KAD201310-001492

PATIENT
  Age: 42 Year
  Sex: Male

DRUGS (3)
  1. RIBAVIRIN [Suspect]
     Indication: HEPATITIS C
     Dates: start: 20130909, end: 20131021
  2. INTERFERON ALFACON-1 [Suspect]
     Indication: HEPATITIS C
     Dates: start: 20130909, end: 20131021
  3. ZAPONEX [Suspect]
     Route: 048
     Dates: start: 20100830, end: 20131022

REACTIONS (8)
  - Agranulocytosis [None]
  - Malaise [None]
  - Pyrexia [None]
  - Thrombocytopenia [None]
  - Off label use [None]
  - Hepatitis C [None]
  - Leukopenia [None]
  - Neutropenia [None]
